FAERS Safety Report 7360952-7 (Version None)
Quarter: 2011Q1

REPORT INFORMATION
  Report Type: 
  Country: None (occurrence: None)
  Receive Date: 20110318
  Receipt Date: 20110309
  Transmission Date: 20110831
  Serious: Yes (Disabling, Other)
  Sender: FDA-Public Use
  Company Number: CA-BAYER-2011-019258

PATIENT
  Age: 22 Year
  Sex: Female

DRUGS (1)
  1. YASMIN 21 [Suspect]
     Indication: MENORRHAGIA
     Dosage: UNK

REACTIONS (5)
  - OEDEMA PERIPHERAL [None]
  - PAIN IN EXTREMITY [None]
  - LOWER LIMB FRACTURE [None]
  - PAIN [None]
  - THROMBOSIS [None]
